FAERS Safety Report 16911883 (Version 2)
Quarter: 2020Q2

REPORT INFORMATION
  Report Type: Report from Study
  Country: US (occurrence: US)
  Receive Date: 20191014
  Receipt Date: 20200512
  Transmission Date: 20200713
  Serious: No
  Sender: FDA-Public Use
  Company Number: US-SA-2019SA278565

PATIENT
  Age: 54 Year
  Sex: Male

DRUGS (2)
  1. DUPILUMAB [Suspect]
     Active Substance: DUPILUMAB
     Indication: DYSHIDROTIC ECZEMA
     Dosage: 300 MG, QOW
     Route: 058
     Dates: start: 201902
  2. DUPILUMAB [Suspect]
     Active Substance: DUPILUMAB
     Indication: RHEUMATOID ARTHRITIS
     Dosage: 600 MG, 1X
     Route: 058
     Dates: start: 2019, end: 2019

REACTIONS (2)
  - Product use in unapproved indication [Unknown]
  - Product dose omission [Unknown]

NARRATIVE: CASE EVENT DATE: 2019
